FAERS Safety Report 7723859-9 (Version None)
Quarter: 2011Q3

REPORT INFORMATION
  Report Type: 
  Country: None (occurrence: None)
  Receive Date: 20110901
  Receipt Date: 20110823
  Transmission Date: 20111222
  Serious: Yes (Other)
  Sender: FDA-Public Use
  Company Number: CA-NAPPMUNDI-DEU-2011-0007715

PATIENT
  Age: 2 Year
  Sex: Female

DRUGS (2)
  1. HYDROMORPHONE HCL [Suspect]
     Indication: PAIN
     Dosage: UNK, SEE TEXT
     Route: 042
  2. HYOSCINE HBR HYT [Concomitant]

REACTIONS (3)
  - SLEEP DISORDER [None]
  - DISCOMFORT [None]
  - ABDOMINAL PAIN [None]
